FAERS Safety Report 8613422-X (Version None)
Quarter: 2012Q3

REPORT INFORMATION
  Report Type: 
  Country: None (occurrence: None)
  Receive Date: 20120822
  Receipt Date: 20120426
  Transmission Date: 20120928
  Serious: Yes (Hospitalization)
  Sender: FDA-Public Use
  Company Number: JP-MERCK-1208JPN006828

PATIENT

DRUGS (12)
  1. [THERAPY UNSPECIFIED] [Concomitant]
     Dosage: ONE-TWICE/DAY
     Route: 061
  2. REBETOL [Suspect]
     Route: 048
     Dates: start: 20120517, end: 20120620
  3. PEG-INTRON [Suspect]
     Indication: HEPATITIS C
     Dosage: 1.5MCG/KG/WEEK
     Route: 058
     Dates: start: 20120202, end: 20120719
  4. REBETOL [Suspect]
     Indication: HEPATITIS C
     Dosage: 600 MG, ONCE
     Route: 048
     Dates: start: 20120202, end: 20120215
  5. REBETOL [Suspect]
     Route: 048
     Dates: start: 20120223, end: 20120425
  6. TELAVIC [Suspect]
     Indication: HEPATITIS C
     Dosage: 1500 MG, ONCE
     Route: 048
     Dates: start: 20120202, end: 20120426
  7. ALLOPURINOL [Concomitant]
     Route: 048
     Dates: start: 20120308, end: 20120405
  8. REBETOL [Suspect]
     Dosage: 400 MG, ONCE
     Route: 048
     Dates: start: 20120216, end: 20120222
  9. REBETOL [Suspect]
     Route: 048
     Dates: start: 20120426, end: 20120501
  10. REBETOL [Suspect]
     Route: 048
     Dates: start: 20120621, end: 20120719
  11. ALLOPURINOL [Concomitant]
     Indication: HYPERURICAEMIA
     Dosage: 50 MG, ONCE
     Route: 048
     Dates: start: 20120216, end: 20120307
  12. REBETOL [Suspect]
     Route: 048
     Dates: start: 20120502, end: 20120516

REACTIONS (1)
  - RASH PAPULAR [None]
